FAERS Safety Report 5193291-3 (Version None)
Quarter: 2006Q4

REPORT INFORMATION
  Report Type: 
  Country: None (occurrence: None)
  Receive Date: 20061228
  Receipt Date: 20060828
  Transmission Date: 20070319
  Serious: No
  Sender: FDA-Public Use
  Company Number: US-GLAXOSMITHKLINE-A0618244A

PATIENT
  Age: 82 Year
  Sex: Male

DRUGS (11)
  1. AVODART [Suspect]
     Indication: BENIGN PROSTATIC HYPERPLASIA
     Dosage: 1CAP PER DAY
     Route: 048
     Dates: start: 20060601
  2. LEXAPRO [Concomitant]
  3. WARFARIN SODIUM [Concomitant]
  4. ZOCOR [Concomitant]
  5. LORAZEPAM [Concomitant]
  6. PROCARDIA [Concomitant]
  7. VITAMIN B-12 [Concomitant]
  8. VITAMINS [Concomitant]
  9. GARLIC [Concomitant]
  10. ST JOHN'S WORT [Concomitant]
  11. UNKNOWN MEDICATION [Concomitant]

REACTIONS (1)
  - DRUG INEFFECTIVE [None]
